FAERS Safety Report 5014903-0 (Version None)
Quarter: 2006Q2

REPORT INFORMATION
  Report Type: 
  Country: None (occurrence: None)
  Receive Date: 20060419
  Receipt Date: 20051103
  Transmission Date: 20061013
  Serious: Yes (Hospitalization)
  Sender: FDA-Public Use
  Company Number: 2005-04373

PATIENT
  Sex: Female

DRUGS (1)
  1. FERRLECIT [Suspect]
     Dosage: 125 MG, IVBP, INTRAVENOUS
     Route: 042

REACTIONS (3)
  - BLOOD PRESSURE DECREASED [None]
  - CHEST PAIN [None]
  - DIZZINESS [None]
